FAERS Safety Report 13135798 (Version 2)
Quarter: 2017Q1

REPORT INFORMATION
  Report Type: Report from Study
  Country: US (occurrence: US)
  Receive Date: 20170120
  Receipt Date: 20170202
  Transmission Date: 20170428
  Serious: Yes (Death, Hospitalization)
  Sender: FDA-Public Use
  Company Number: US-ACTELION-A-US2017-148544

PATIENT
  Age: 54 Year
  Sex: Female

DRUGS (31)
  1. SPIRIVA [Concomitant]
     Active Substance: TIOTROPIUM BROMIDE MONOHYDRATE
     Dosage: 18 MCG, QD
     Route: 048
     Dates: start: 20161011
  2. OXYGEN. [Concomitant]
     Active Substance: OXYGEN
     Dosage: 3 L CONTINUOUS
  3. FERROUS SULFATE. [Concomitant]
     Active Substance: FERROUS SULFATE
     Dosage: 325 MG, BID
     Route: 048
     Dates: start: 20160122
  4. SILDENAFIL. [Concomitant]
     Active Substance: SILDENAFIL
     Dosage: 20 MG, TID
     Route: 048
     Dates: start: 20150626
  5. UNASYN [Concomitant]
     Active Substance: AMPICILLIN SODIUM\SULBACTAM SODIUM
     Dosage: 3000 MG Q6HR
     Route: 042
     Dates: start: 20161027
  6. TOPROL XL [Concomitant]
     Active Substance: METOPROLOL SUCCINATE
     Dosage: 50 MG, TID
     Route: 048
     Dates: start: 20161011
  7. TYLENOL WITH CODEINE [Concomitant]
     Active Substance: ACETAMINOPHEN\CODEINE PHOSPHATE
     Indication: COUGH
     Dosage: UNK
     Dates: start: 20160824
  8. PROTONIX [Concomitant]
     Active Substance: PANTOPRAZOLE SODIUM
     Dosage: 40 MG, QD
     Route: 042
     Dates: start: 20161027
  9. NEURONTIN [Concomitant]
     Active Substance: GABAPENTIN
     Dosage: 900 MG, TID
     Route: 048
     Dates: start: 20161013
  10. KLOR-CON [Concomitant]
     Active Substance: POTASSIUM CHLORIDE
     Dosage: 20 MEQ, QD
     Route: 048
     Dates: start: 20161011
  11. APRESOLINE HYDROCHLORIDE [Concomitant]
     Active Substance: HYDRALAZINE HYDROCHLORIDE
     Dosage: 12.5 MG, TID
     Route: 048
     Dates: start: 20160912
  12. PHENERGAN [Concomitant]
     Active Substance: PROMETHAZINE HYDROCHLORIDE
     Dosage: 25 MG, Q6HR PRN
     Route: 048
     Dates: start: 20160905
  13. CYMBALTA [Concomitant]
     Active Substance: DULOXETINE HYDROCHLORIDE
     Dosage: 60 MG, QD
     Route: 048
     Dates: start: 20160302
  14. ASPIRIN 81 [Concomitant]
     Active Substance: ASPIRIN
     Dosage: 81 MG, QD
     Route: 048
  15. FOLIC ACID. [Concomitant]
     Active Substance: FOLIC ACID
     Dosage: 1 MG, QD
     Route: 048
     Dates: start: 20150910
  16. LANOXIN [Concomitant]
     Active Substance: DIGOXIN
     Dosage: 0.062 MG, QD
     Route: 048
     Dates: start: 20160815
  17. TOPAMAX [Concomitant]
     Active Substance: TOPIRAMATE
     Indication: HEADACHE
     Dosage: 25 MG, QAM
     Dates: start: 20160803
  18. NORCO [Concomitant]
     Active Substance: ACETAMINOPHEN\HYDROCODONE BITARTRATE
     Indication: PAIN
     Dosage: UNK
     Dates: start: 20161020
  19. IMITREX [Concomitant]
     Active Substance: SUMATRIPTAN SUCCINATE
     Indication: MIGRAINE
     Dosage: 50 MG, QD
     Route: 048
     Dates: start: 20160926
  20. COUMADIN [Concomitant]
     Active Substance: WARFARIN SODIUM
     Dosage: 7.5-10 MG QD
     Dates: start: 20160706
  21. LOVENOX [Concomitant]
     Active Substance: ENOXAPARIN SODIUM
  22. OPSUMIT [Suspect]
     Active Substance: MACITENTAN
     Indication: PULMONARY HYPERTENSION
     Dosage: 10 MG, QD
     Route: 048
     Dates: start: 20150414, end: 20161104
  23. CYCLOBENZAPRINE [Concomitant]
     Active Substance: CYCLOBENZAPRINE
     Indication: MUSCLE SPASMS
     Dosage: 5-10 MG TID PRN
     Route: 048
     Dates: start: 20161011
  24. KENALOG [Concomitant]
     Active Substance: TRIAMCINOLONE ACETONIDE
     Dosage: UNK, BID
     Dates: start: 20160912
  25. CATAPRES [Concomitant]
     Active Substance: CLONIDINE HYDROCHLORIDE
     Dosage: 0.1 MG, BID
     Dates: start: 20160308
  26. MIDAZOLAM [Concomitant]
     Active Substance: MIDAZOLAM HYDROCHLORIDE
     Dosage: 0.1-10 MG/HR
     Route: 042
     Dates: start: 20161027
  27. TOPAMAX [Concomitant]
     Active Substance: TOPIRAMATE
     Dosage: 50 MG, QPM
  28. SUBLIMAZE [Concomitant]
     Active Substance: FENTANYL CITRATE
     Dosage: 0-200 MCG/HR
     Route: 042
     Dates: start: 20161027
  29. PROVENTIL [Concomitant]
     Active Substance: ALBUTEROL
     Dosage: 2.5 MG, Q4HRS
     Dates: start: 20161011
  30. PREDNISONE. [Concomitant]
     Active Substance: PREDNISONE
     Dosage: 60 MG, QD
     Dates: start: 20160830
  31. BUMEX [Concomitant]
     Active Substance: BUMETANIDE
     Dosage: 1 MG, QD
     Route: 048
     Dates: start: 20160824

REACTIONS (10)
  - Brain herniation [Fatal]
  - Pulmonary arterial pressure increased [Unknown]
  - Pupil fixed [Fatal]
  - Hypertension [Unknown]
  - Transfusion [Unknown]
  - Chronic obstructive pulmonary disease [Unknown]
  - Cerebral haemorrhage [Fatal]
  - Pupillary reflex impaired [Fatal]
  - Anticoagulation drug level below therapeutic [Unknown]
  - Acute respiratory failure [Unknown]

NARRATIVE: CASE EVENT DATE: 20161103
